FAERS Safety Report 8521196-6 (Version None)
Quarter: 2012Q3

REPORT INFORMATION
  Report Type: 
  Country: None (occurrence: None)
  Receive Date: 20120719
  Receipt Date: 20120629
  Transmission Date: 20120928
  Serious: Yes (Other)
  Sender: FDA-Public Use
  Company Number: CA-SANOFI-AVENTIS-200614795GDDC

PATIENT
  Age: 61 Year
  Sex: Male

DRUGS (4)
  1. OMEGA-3 POLYUNSATURATED FATTY ACID [Suspect]
     Dosage: DOSE AS USED: 1 CAPSULE
     Route: 048
     Dates: start: 20041025
  2. LANTUS [Suspect]
     Indication: DIABETES MELLITUS
     Route: 058
     Dates: start: 20041025
  3. OPTIPEN [Suspect]
     Indication: DIABETES MELLITUS
  4. SIMVASTATIN [Concomitant]
     Route: 048
     Dates: start: 20060101

REACTIONS (1)
  - RETINAL HAEMORRHAGE [None]
